FAERS Safety Report 5009164-2 (Version None)
Quarter: 2006Q2

REPORT INFORMATION
  Report Type: 
  Country: None (occurrence: None)
  Receive Date: 20060518
  Receipt Date: 20060511
  Transmission Date: 20061013
  Serious: Yes (Hospitalization)
  Sender: FDA-Public Use
  Company Number: 200611933GDS

PATIENT
  Age: 54 Year
  Sex: Female

DRUGS (4)
  1. ASPIRIN [Suspect]
     Indication: ARTHROPATHY
  2. ASPIRIN [Suspect]
     Indication: SYSTEMIC LUPUS ERYTHEMATOSUS
  3. ROFECOXIB [Suspect]
     Indication: ARTHROPATHY
  4. ROFECOXIB [Suspect]
     Indication: SYSTEMIC LUPUS ERYTHEMATOSUS

REACTIONS (3)
  - GASTROINTESTINAL HAEMORRHAGE [None]
  - INTESTINAL DIAPHRAGM DISEASE [None]
  - INTESTINAL OBSTRUCTION [None]
